FAERS Safety Report 8108479 (Version 2)
Quarter: 2017Q1

REPORT INFORMATION
  Report Type: Spontaneous
  Country: CH (occurrence: CH)
  Receive Date: 20110826
  Receipt Date: 20170323
  Transmission Date: 20170429
  Serious: Yes (Other)
  Sender: FDA-Public Use
  Company Number: CH-PFIZER INC-2011196248

PATIENT
  Age: 23 Year
  Sex: Female

DRUGS (2)
  1. MIFEGYNE [Suspect]
     Active Substance: MIFEPRISTONE
     Indication: ABORTION INDUCED
     Dosage: 600 MG, 1X/DAY
     Route: 048
     Dates: start: 20110609, end: 20110609
  2. CYTOTEC [Suspect]
     Active Substance: MISOPROSTOL
     Indication: ABORTION INDUCED
     Dosage: 400 UG, 1X/DAY
     Route: 065
     Dates: start: 20110611, end: 20110611

REACTIONS (3)
  - Haemorrhage [Unknown]
  - Drug ineffective for unapproved indication [Unknown]
  - Abdominal pain [Unknown]

NARRATIVE: CASE EVENT DATE: 20110609
